FAERS Safety Report 6061927-0 (Version None)
Quarter: 2009Q1

REPORT INFORMATION
  Report Type: 
  Country: None (occurrence: None)
  Receive Date: 20090202
  Receipt Date: 20090129
  Transmission Date: 20090719
  Serious: Yes (Death, Other)
  Sender: FDA-Public Use
  Company Number: PHHY2008JP26611

PATIENT
  Sex: Male
  Weight: 62 kg

DRUGS (7)
  1. ZOMETA [Suspect]
     Indication: METASTASES TO BONE
     Dosage: 4 MG (SINGLE DOSE)DILUTED TO SALINE 100 ML
     Route: 042
     Dates: start: 20080305
  2. ZOMETA [Suspect]
     Indication: PROSTATE CANCER
  3. FLUTAMIDE [Concomitant]
  4. STRONTIUM [Concomitant]
     Indication: METASTASES TO BONE
  5. CHEMOTHERAPEUTICS NOS [Concomitant]
  6. DOCETAXEL [Concomitant]
     Dosage: UNK
     Dates: start: 20080626
  7. DOCETAXEL [Concomitant]
     Dosage: UNK
     Dates: start: 20080626

REACTIONS (5)
  - BLOOD CALCIUM DECREASED [None]
  - HYPOAESTHESIA [None]
  - MALIGNANT NEOPLASM PROGRESSION [None]
  - PROSTATIC SPECIFIC ANTIGEN INCREASED [None]
  - TETANY [None]
